FAERS Safety Report 5041326-0 (Version None)
Quarter: 2006Q2

REPORT INFORMATION
  Report Type: 
  Country: None (occurrence: None)
  Receive Date: 20060626
  Receipt Date: 20060614
  Transmission Date: 20061013
  Serious: Yes (Other)
  Sender: FDA-Public Use
  Company Number: 2006-01440

PATIENT
  Age: 50 Year
  Sex: Female

DRUGS (2)
  1. VELCADE [Suspect]
  2. ALOXI [Concomitant]

REACTIONS (4)
  - DYSPHAGIA [None]
  - NAUSEA [None]
  - RASH [None]
  - THROAT TIGHTNESS [None]
